FAERS Safety Report 9555502 (Version 1)
Quarter: 2013Q3

REPORT INFORMATION
  Report Type: Spontaneous
  Country: US (occurrence: None)
  Receive Date: 20130925
  Receipt Date: 20130925
  Transmission Date: 20140515
  Serious: Yes (Hospitalization)
  Sender: FDA-Public Use
  Company Number: None

PATIENT
  Age: 64 Year
  Sex: Male
  Weight: 78.6 kg

DRUGS (14)
  1. IPILIMUMAB [Suspect]
     Indication: MALIGNANT MELANOMA
     Route: 042
     Dates: start: 20130625
  2. ASPIRIN [Concomitant]
  3. ATORVASTATIN [Concomitant]
  4. CALCIUM +VITAMINE D [Concomitant]
  5. CYANOCOBALAMIN [Concomitant]
  6. FENOFIBRATE [Concomitant]
  7. GLUCOSAMINE [Concomitant]
  8. HYDROCHLOROTHIAZIDE [Concomitant]
  9. INSULIN ASPAR AND GLARGINE [Concomitant]
  10. LOSARTAN [Concomitant]
  11. MAGNESIUM [Concomitant]
  12. ONDANSETRON [Concomitant]
  13. TENOFOVIR [Concomitant]
  14. TESTOSTERONE PATCH [Concomitant]

REACTIONS (3)
  - Vomiting [None]
  - Nausea [None]
  - Abdominal pain upper [None]
